FAERS Safety Report 11629510 (Version 2)
Quarter: 2020Q3

REPORT INFORMATION
  Report Type: Spontaneous
  Country: US (occurrence: US)
  Receive Date: 20151014
  Receipt Date: 20200904
  Transmission Date: 20201102
  Serious: Yes (Other)
  Sender: FDA-Public Use
  Company Number: US-SA-2015SA160178

PATIENT

DRUGS (1)
  1. LANTUS [Suspect]
     Active Substance: INSULIN GLARGINE
     Indication: TYPE 2 DIABETES MELLITUS
     Dosage: UNK
     Route: 065

REACTIONS (5)
  - Hypertension [Not Recovered/Not Resolved]
  - Cerebrovascular accident [Unknown]
  - Blood glucose increased [Unknown]
  - Swelling [Unknown]
  - Mental impairment [Not Recovered/Not Resolved]
